FAERS Safety Report 8227533-4 (Version None)
Quarter: 2012Q1

REPORT INFORMATION
  Report Type: 
  Country: None (occurrence: None)
  Receive Date: 20120322
  Receipt Date: 20120314
  Transmission Date: 20120608
  Serious: Yes (Other)
  Sender: FDA-Public Use
  Company Number: RU-ASTELLAS-2012EU002002

PATIENT
  Age: 45 Year
  Sex: Female

DRUGS (2)
  1. VESICARE [Suspect]
     Indication: HYPERTONIC BLADDER
     Dosage: UNK
     Route: 065
  2. VESICARE [Suspect]
     Indication: URGE INCONTINENCE

REACTIONS (3)
  - CARDIOTOXICITY [None]
  - ABDOMINAL PAIN [None]
  - SENSATION OF PRESSURE [None]
